FAERS Safety Report 7582511-3 (Version None)
Quarter: 2011Q2

REPORT INFORMATION
  Report Type: 
  Country: None (occurrence: None)
  Receive Date: 20110527
  Receipt Date: 20101227
  Transmission Date: 20111010
  Serious: Yes (Other)
  Sender: FDA-Public Use
  Company Number: US201011006230

PATIENT
  Age: 52 Year
  Sex: Male
  Weight: 84.8 kg

DRUGS (6)
  1. LISINOPRIL [Concomitant]
  2. CRESTOR [Concomitant]
  3. METFORMIN HCL [Concomitant]
  4. BYETTA [Suspect]
     Indication: TYPE 2 DIABETES MELLITUS
     Dosage: 5 UG, 2/D, SUBCUTANEOUS, 10 UG, 2/D
     Route: 058
     Dates: start: 20080428
  5. BYETTA [Suspect]
     Indication: TYPE 2 DIABETES MELLITUS
     Dosage: 5 UG, 2/D, SUBCUTANEOUS, 10 UG, 2/D
     Route: 058
     Dates: start: 20080407, end: 20080428
  6. GLIMEPIRIDE [Concomitant]

REACTIONS (3)
  - BLOOD AMYLASE INCREASED [None]
  - PANCREATITIS [None]
  - WEIGHT DECREASED [None]
